FAERS Safety Report 10064165 (Version 1)
Quarter: 2014Q2

REPORT INFORMATION
  Report Type: Report from Study
  Country: ES (occurrence: ES)
  Receive Date: 20140408
  Receipt Date: 20140408
  Transmission Date: 20141212
  Serious: Yes (Death, Other)
  Sender: FDA-Public Use
  Company Number: ES-ROCHE-1375555

PATIENT
  Sex: 0

DRUGS (5)
  1. MYCOPHENOLATE MOFETIL [Suspect]
     Indication: PROPHYLAXIS AGAINST TRANSPLANT REJECTION
     Dosage: 1-2G/DAY
     Route: 065
  2. TACROLIMUS [Suspect]
     Indication: PROPHYLAXIS AGAINST TRANSPLANT REJECTION
     Dosage: AT STANDARD DOSES AND ADJUSTED TO ACHIEVE A 10-15NG/ML BLOOD TROUGH LEVEL DURING THE 1ST WEEKS
     Route: 065
  3. CICLOSPORIN [Suspect]
     Indication: PROPHYLAXIS AGAINST TRANSPLANT REJECTION
     Route: 065
  4. PEGINTERFERON ALFA-2B [Suspect]
     Indication: HEPATITIS C
     Route: 065
  5. RIBAVIRIN [Suspect]
     Indication: HEPATITIS C
     Dosage: WEIGHT ADJUSTED TO 800-1200MG/DAY
     Route: 065

REACTIONS (3)
  - Neoplasm malignant [Fatal]
  - Sepsis [Fatal]
  - Cytomegalovirus infection [Unknown]
